FAERS Safety Report 21327175 (Version 1)
Quarter: 2022Q3

REPORT INFORMATION
  Report Type: Spontaneous
  Country: US (occurrence: None)
  Receive Date: 20220912
  Receipt Date: 20220912
  Transmission Date: 20221026
  Serious: Yes (Other)
  Sender: FDA-Public Use
  Company Number: None

PATIENT
  Sex: Female

DRUGS (1)
  1. AVONEX [Suspect]
     Active Substance: INTERFERON BETA-1A
     Indication: Multiple sclerosis
     Dosage: OTHER STRENGTH : 30MCG/0.5ML;?OTHER QUANTITY : 30MCG/0.5ML;?FREQUENCY : WEEKLY;?
     Route: 030
     Dates: start: 20210126

REACTIONS (2)
  - Surgery [None]
  - Intentional dose omission [None]
